FAERS Safety Report 8531708-4 (Version None)
Quarter: 2012Q3

REPORT INFORMATION
  Report Type: 
  Country: None (occurrence: None)
  Receive Date: 20120711
  Receipt Date: 20120629
  Transmission Date: 20120928
  Serious: Yes (Death)
  Sender: FDA-Public Use
  Company Number: 2012MA008189

PATIENT
  Age: 78 Year
  Sex: Male

DRUGS (8)
  1. ACETYLSALICYLIC ACID SRT [Concomitant]
  2. JONSTERIL [Concomitant]
  3. SIMVASTATIN [Concomitant]
  4. RISPERIDONE [Suspect]
     Indication: PRODUCT USED FOR UNKNOWN INDICATION
     Dosage: 0.5 MG; QD; [P
     Route: 048
     Dates: start: 20100512, end: 20100530
  5. BISOPROLOL FUMARATE [Concomitant]
  6. INSULIN [Concomitant]
  7. SERTRALINE HYDROCHLORIDE [Suspect]
     Indication: PRODUCT USED FOR UNKNOWN INDICATION
     Dosage: 50 MG; QD; PO
     Route: 048
  8. TORSEMIDE [Concomitant]

REACTIONS (4)
  - ANGINA PECTORIS [None]
  - MYOCARDIAL INFARCTION [None]
  - CYANOSIS [None]
  - OEDEMA [None]
